FAERS Safety Report 17346258 (Version 1)
Quarter: 2020Q1

REPORT INFORMATION
  Report Type: Spontaneous
  Country: US (occurrence: US)
  Receive Date: 20200114
  Receipt Date: 20200114
  Transmission Date: 20200409
  Serious: Yes (Hospitalization)
  Sender: FDA-Public Use
  Company Number: None

PATIENT
  Age: 62 Year
  Sex: Female

DRUGS (2)
  1. XELODA [Concomitant]
     Active Substance: CAPECITABINE
  2. IBRANCE [Suspect]
     Active Substance: PALBOCICLIB
     Indication: BREAST CANCER FEMALE
     Dosage: 75MG DAILY FOR 1 DAYS, THEN 7 DAYS OFF BY MOUTH?ON HELD
     Route: 048
     Dates: start: 20190827

REACTIONS (3)
  - Feeling abnormal [None]
  - Incoherent [None]
  - Hallucination [None]
